FAERS Safety Report 19217417 (Version 2)
Quarter: 2021Q3

REPORT INFORMATION
  Report Type: Spontaneous
  Country: US (occurrence: US)
  Receive Date: 20210505
  Receipt Date: 20210721
  Transmission Date: 20211014
  Serious: No
  Sender: FDA-Public Use
  Company Number: US-HIKMA PHARMACEUTICALS USA INC.-US-H14001-21-00873

PATIENT
  Sex: Female

DRUGS (1)
  1. BOSENTAN. [Suspect]
     Active Substance: BOSENTAN
     Indication: PULMONARY HYPERTENSION
     Route: 048

REACTIONS (30)
  - Wheezing [Unknown]
  - Adverse event [Unknown]
  - Oedema [Unknown]
  - Fall [Unknown]
  - Migraine [Unknown]
  - Hypertension [Unknown]
  - Musculoskeletal stiffness [Unknown]
  - Arthralgia [Unknown]
  - Depression [Unknown]
  - Hypoaesthesia [Unknown]
  - Asthenia [Unknown]
  - Thirst [Unknown]
  - Sleep disorder [Unknown]
  - Dizziness [Unknown]
  - Cough [Unknown]
  - Nausea [Unknown]
  - Dyspnoea [Unknown]
  - Pain [Unknown]
  - Burning sensation [Unknown]
  - Increased tendency to bruise [Unknown]
  - Weight decreased [Unknown]
  - Vomiting [Unknown]
  - Constipation [Unknown]
  - Gait disturbance [Unknown]
  - Skin disorder [Unknown]
  - Visual impairment [Unknown]
  - Hyperhidrosis [Unknown]
  - Pyrexia [Unknown]
  - Diarrhoea [Unknown]
  - Anxiety [Unknown]
